FAERS Safety Report 12555722 (Version 3)
Quarter: 2016Q4

REPORT INFORMATION
  Report Type: Spontaneous
  Country: US (occurrence: US)
  Receive Date: 20160714
  Receipt Date: 20161017
  Transmission Date: 20170207
  Serious: No
  Sender: FDA-Public Use
  Company Number: US-PFIZER INC-2016319955

PATIENT
  Age: 68 Year
  Sex: Female
  Weight: 54 kg

DRUGS (3)
  1. LORAZEPAM. [Concomitant]
     Active Substance: LORAZEPAM
     Indication: SLEEP DISORDER
     Dosage: 1 MG, 1X/DAY, EVERY NIGHT
     Route: 048
     Dates: start: 1991, end: 201609
  2. NEFAZODONE [Concomitant]
     Active Substance: NEFAZODONE
     Dosage: UNK
  3. ESTRING [Suspect]
     Active Substance: ESTRADIOL
     Indication: VULVOVAGINAL DRYNESS
     Dosage: 2 MG, UNK
     Route: 067
     Dates: start: 2016, end: 2016

REACTIONS (9)
  - Hypoaesthesia [Recovered/Resolved]
  - Dissociation [Recovered/Resolved]
  - Haemorrhoids [Unknown]
  - Decreased activity [Recovered/Resolved]
  - Condition aggravated [Recovered/Resolved]
  - Anxiety [Recovered/Resolved]
  - Pruritus [Recovered/Resolved]
  - Feeling abnormal [Recovered/Resolved]
  - Vaginal odour [Recovered/Resolved]

NARRATIVE: CASE EVENT DATE: 2016
